FAERS Safety Report 8917755 (Version 1)
Quarter: 2012Q4

REPORT INFORMATION
  Report Type: 
  Country: GB (occurrence: GB)
  Receive Date: 20121120
  Receipt Date: 20121120
  Transmission Date: 20130627
  Serious: Yes (Other)
  Sender: FDA-Public Use
  Company Number: GB-MYLANLABS-2012S1023271

PATIENT
  Sex: Male

DRUGS (2)
  1. LOSARTAN [Suspect]
     Indication: PRODUCT USED FOR UNKNOWN INDICATION
  2. LOSARTAN [Suspect]
     Indication: PRODUCT USED FOR UNKNOWN INDICATION

REACTIONS (3)
  - Dizziness [Unknown]
  - Syncope [Unknown]
  - Feeling abnormal [Unknown]
